FAERS Safety Report 13417565 (Version 2)
Quarter: 2017Q2

REPORT INFORMATION
  Report Type: Spontaneous
  Country: US (occurrence: US)
  Receive Date: 20170407
  Receipt Date: 20170426
  Transmission Date: 20170830
  Serious: Yes (Death, Hospitalization, Other)
  Sender: FDA-Public Use
  Company Number: US-BAUSCH-BL-2017-008614

PATIENT
  Age: 61 Year
  Sex: Male

DRUGS (1)
  1. XIFAXAN [Suspect]
     Active Substance: RIFAXIMIN
     Indication: PRODUCT USED FOR UNKNOWN INDICATION
     Route: 065

REACTIONS (8)
  - Renal failure [Unknown]
  - Gastrointestinal haemorrhage [Fatal]
  - Respiratory failure [Unknown]
  - Abasia [Unknown]
  - Liver disorder [Unknown]
  - Hepatic failure [Fatal]
  - Hepatitis B [Fatal]
  - Ascites [Unknown]

NARRATIVE: CASE EVENT DATE: 20170312
